FAERS Safety Report 21377776 (Version 1)
Quarter: 2022Q3

REPORT INFORMATION
  Report Type: Spontaneous
  Country: GB (occurrence: GB)
  Receive Date: 20220926
  Receipt Date: 20220926
  Transmission Date: 20221026
  Serious: Yes (Hospitalization, Other)
  Sender: FDA-Public Use
  Company Number: GB-VERTEX PHARMACEUTICALS-2022-014203

PATIENT
  Sex: Male

DRUGS (1)
  1. ELEXACAFTOR\IVACAFTOR\TEZACAFTOR [Suspect]
     Active Substance: ELEXACAFTOR\IVACAFTOR\TEZACAFTOR
     Indication: Cystic fibrosis
     Dosage: ONE TABLET;(75MG IVACAFTOR/ 50MG TEZACAFTOR/ 100MG ELEXACAFTOR); PM
     Route: 048

REACTIONS (2)
  - Neoplasm malignant [Unknown]
  - Illness [Unknown]

NARRATIVE: CASE EVENT DATE: 20220101
